FAERS Safety Report 8261672 (Version 3)
Quarter: 2014Q1

REPORT INFORMATION
  Report Type: Spontaneous
  Country: US (occurrence: US)
  Receive Date: 20111123
  Receipt Date: 20140328
  Transmission Date: 20141002
  Serious: Yes (Hospitalization, Other)
  Sender: FDA-Public Use
  Company Number: US-US-EMD SERONO, INC.-7096694

PATIENT
  Sex: Male
  Weight: 72 kg

DRUGS (1)
  1. REBIF [Suspect]
     Indication: MULTIPLE SCLEROSIS
     Route: 058
     Dates: start: 20050923

REACTIONS (3)
  - Renal failure [Not Recovered/Not Resolved]
  - Kidney infection [Not Recovered/Not Resolved]
  - Arteriovenous fistula site infection [Not Recovered/Not Resolved]
